FAERS Safety Report 8795791 (Version 3)
Quarter: 2012Q4

REPORT INFORMATION
  Report Type: 
  Country: NL (occurrence: NL)
  Receive Date: 20120920
  Receipt Date: 20121012
  Transmission Date: 20130627
  Serious: Yes (Other)
  Sender: FDA-Public Use
  Company Number: NL-PFIZER INC-2012227961

PATIENT
  Age: 69 Year
  Sex: Male
  Weight: 103 kg

DRUGS (16)
  1. ATORVASTATIN PFIZER [Suspect]
     Dosage: 40 mg, 1x/day
     Route: 048
     Dates: end: 20120920
  2. ACETYLSALIC LYS/COBAMAMIDE/COCARBOXYLASE/LIDOCAINE HCL/PYRIDOXAL PHOS [Concomitant]
     Indication: HYPERTENSION
     Dosage: 80 mg, 1x/day
     Dates: start: 20110119
  3. AMITRIPTYLINE [Concomitant]
     Indication: DEPRESSION
     Dosage: 25 mg, 1x/day
     Dates: start: 20120201
  4. DOXAZOSIN [Concomitant]
     Indication: HYPERTROPHY
     Dosage: 4 mg, 1x/day
     Dates: start: 20110119
  5. ESOMEPRAZOLE [Concomitant]
     Indication: PEPTIC ULCER
     Dosage: 40 mg, 2x/day
     Dates: start: 20110119
  6. ISOSORBIDE [Concomitant]
     Indication: ANGINA PECTORIS
     Dosage: 60 mg, 1x/day
     Dates: start: 20110119
  7. LYRICA [Concomitant]
     Indication: NEURALGIA
     Dosage: 150 mg, 2x/day
     Dates: start: 20120201
  8. METFORMIN [Concomitant]
     Indication: TYPE 2 DIABETES MELLITUS
     Dosage: 850 mg, 3x/day
     Dates: start: 20120119
  9. SPIRONOLACTONE [Concomitant]
     Indication: HYPERTENSION
     Dosage: 25 mg, 2x/day
     Dates: start: 20111026
  10. TRYPTIZOL [Concomitant]
     Indication: DEPRESSION
     Dosage: 50 mg, 1x/day
     Dates: start: 20110119
  11. INSULIN [Concomitant]
     Indication: TYPE 2 DIABETES MELLITUS
     Dosage: 3 ml, UNK
     Dates: start: 20120508
  12. MOLAXOLE [Concomitant]
     Dosage: 1 DF, 1x/day
     Dates: start: 20110310
  13. TOVIAZ [Concomitant]
     Indication: BLADDER DISORDER
     Dosage: 8 mg, 1x/day
     Dates: start: 20111102
  14. HUMULINE REGULAR [Concomitant]
     Dosage: UNK
  15. DEPONIT [Concomitant]
     Dosage: 37.4 mg, 1x/day
  16. TINSET [Concomitant]
     Dosage: 30 mg, 1x/day

REACTIONS (9)
  - Syncope [Recovered/Resolved]
  - Balance disorder [Recovered/Resolved]
  - Fall [Recovered/Resolved]
  - Listless [Recovered/Resolved]
  - Dizziness [Recovered/Resolved]
  - Myalgia [Recovered/Resolved]
  - Fatigue [Recovered/Resolved]
  - Pruritus [Recovered/Resolved]
  - Dry mouth [Recovered/Resolved]
